FAERS Safety Report 9126056 (Version 1)
Quarter: 2013Q1

REPORT INFORMATION
  Report Type: Spontaneous
  Country: FR (occurrence: FR)
  Receive Date: 20130121
  Receipt Date: 20130121
  Transmission Date: 20140127
  Serious: Yes (Hospitalization)
  Sender: FDA-Public Use
  Company Number: FR-009507513-1301FRA004360

PATIENT
  Sex: Female
  Weight: 53 kg

DRUGS (2)
  1. COZAAR 50 MG [Suspect]
     Indication: HYPERTENSION
     Dosage: 50 MG, QD
     Route: 048
     Dates: start: 200509, end: 201301
  2. KARDEGIC [Concomitant]
     Dosage: 160 MG, QD

REACTIONS (4)
  - Presyncope [Unknown]
  - Haematocrit decreased [Unknown]
  - Red blood cell count decreased [None]
  - Blood sodium decreased [None]
